FAERS Safety Report 7236809-9 (Version None)
Quarter: 2011Q1

REPORT INFORMATION
  Report Type: 
  Country: None (occurrence: None)
  Receive Date: 20110120
  Receipt Date: 20110119
  Transmission Date: 20110831
  Serious: Yes (Hospitalization)
  Sender: FDA-Public Use
  Company Number: US-B.I. PHARMACEUTICALS,INC./RIDGEFIELD-2011-BP-01175BP

PATIENT
  Sex: Female

DRUGS (6)
  1. PRADAXA [Suspect]
     Indication: ANTICOAGULANT THERAPY
     Dosage: 300 MG
     Route: 048
     Dates: start: 20101201
  2. CARVEDILOL [Concomitant]
     Indication: MYOCARDIAL INFARCTION
     Dosage: 12.5 MG
     Dates: start: 20101201
  3. DIGOXIN [Concomitant]
     Indication: MYOCARDIAL INFARCTION
     Dosage: 125 MG
     Dates: start: 20101201
  4. LISINOPRIL [Concomitant]
     Indication: HYPERTENSION
     Dates: start: 20101201
  5. XANAX [Concomitant]
     Indication: NERVOUSNESS
     Dates: start: 20101201
  6. ASPIRIN [Concomitant]
     Indication: MYOCARDIAL INFARCTION
     Dosage: 81 MG
     Dates: start: 20101201

REACTIONS (1)
  - CHEST PAIN [None]
